APPROVED DRUG PRODUCT: TRIAMCINOLONE ACETONIDE
Active Ingredient: TRIAMCINOLONE ACETONIDE
Strength: 0.1%
Dosage Form/Route: OINTMENT;TOPICAL
Application: A207365 | Product #001 | TE Code: AT
Applicant: CHARTWELL RX SCIENCES LLC
Approved: Oct 12, 2018 | RLD: No | RS: No | Type: RX